FAERS Safety Report 8989076 (Version 1)
Quarter: 2012Q4

REPORT INFORMATION
  Report Type: 
  Country: GB (occurrence: GB)
  Receive Date: 20121228
  Receipt Date: 20121228
  Transmission Date: 20130627
  Serious: Yes (Hospitalization, Other)
  Sender: FDA-Public Use
  Company Number: GB-ELI_LILLY_AND_COMPANY-GB201212006810

PATIENT
  Age: 21 Year

DRUGS (4)
  1. OLANZAPINE [Suspect]
     Dosage: 5 mg, bid
  2. OLANZAPINE [Suspect]
     Dosage: 5 mg, qd
  3. LORAZEPAM [Concomitant]
     Dosage: 1 DF, prn
  4. ZOPICLONE [Concomitant]
     Dosage: 1 DF, prn

REACTIONS (2)
  - Mental disorder [Unknown]
  - Thrombocytopenia [Recovering/Resolving]
